FAERS Safety Report 5354165-8 (Version None)
Quarter: 2007Q2

REPORT INFORMATION
  Report Type: 
  Country: None (occurrence: None)
  Receive Date: 20070612
  Receipt Date: 20070530
  Transmission Date: 20071010
  Serious: Yes (Hospitalization, Other)
  Sender: FDA-Public Use
  Company Number: US-ELI_LILLY_AND_COMPANY-US200704002758

PATIENT
  Age: 50 Year
  Sex: Female
  Weight: 84.807 kg

DRUGS (8)
  1. METFORMIN HCL [Concomitant]
     Dosage: 1 G, 2/D
  2. HYDROXYZINE HYDROCHLORIDE [Concomitant]
     Dosage: 50 UNK, 4/D
  3. MERIDIA [Concomitant]
     Dosage: 10 UNK, DAILY (1/D)
  4. BYETTA [Suspect]
     Indication: DIABETES MELLITUS NON-INSULIN-DEPENDENT
     Dosage: 5 UG, EACH MORNING
     Route: 058
     Dates: start: 20060101, end: 20060701
  5. BYETTA [Suspect]
     Dosage: 10 UG, EACH EVENING
     Route: 058
     Dates: start: 20060101, end: 20060701
  6. BYETTA [Suspect]
     Dosage: 10 UG, 2/D
     Route: 058
     Dates: start: 20060701
  7. AMARYL [Concomitant]
     Indication: DIABETES MELLITUS NON-INSULIN-DEPENDENT
     Dosage: 4 MG, 2/D
     Route: 048
     Dates: start: 20070301
  8. PREDNISONE TAB [Concomitant]
     Indication: URTICARIA
     Dosage: 5 MG, DAILY (1/D)
     Route: 048
     Dates: start: 20051001

REACTIONS (10)
  - BLOOD GLUCOSE INCREASED [None]
  - CHEST PAIN [None]
  - DIZZINESS [None]
  - HYPOAESTHESIA [None]
  - INCREASED APPETITE [None]
  - LIMB DISCOMFORT [None]
  - LOSS OF CONSCIOUSNESS [None]
  - NAUSEA [None]
  - PALLOR [None]
  - WEIGHT DECREASED [None]
